FAERS Safety Report 12299144 (Version 1)
Quarter: 2016Q2

REPORT INFORMATION
  Report Type: Spontaneous
  Country: US (occurrence: US)
  Receive Date: 20160425
  Receipt Date: 20160425
  Transmission Date: 20160815
  Serious: No
  Sender: FDA-Public Use
  Company Number: US-JAZZ-2015-US-022382

PATIENT
  Age: 60 Year
  Sex: Female

DRUGS (10)
  1. LUVOX CR [Suspect]
     Active Substance: FLUVOXAMINE MALEATE
     Dosage: 300 MG, UNK
     Dates: start: 20140701, end: 20140812
  2. LUVOX CR [Suspect]
     Active Substance: FLUVOXAMINE MALEATE
     Dosage: 100 MG, QD
     Dates: start: 201406, end: 201406
  3. LUVOX CR [Suspect]
     Active Substance: FLUVOXAMINE MALEATE
     Dosage: 200 MG, UNK
     Dates: start: 20140814, end: 20140814
  4. LUVOX CR [Suspect]
     Active Substance: FLUVOXAMINE MALEATE
     Dosage: 250 MG, UNK
     Dates: start: 20140630, end: 20140630
  5. LUVOX CR [Suspect]
     Active Substance: FLUVOXAMINE MALEATE
     Dosage: 250 MG, UNK
     Dates: start: 20140813, end: 20140813
  6. LUVOX CR [Suspect]
     Active Substance: FLUVOXAMINE MALEATE
     Dosage: 100 MG, UNK
     Dates: start: 20140815, end: 20140817
  7. LUVOX CR [Suspect]
     Active Substance: FLUVOXAMINE MALEATE
     Dosage: 150 MG, UNK
     Dates: start: 20140624, end: 20140624
  8. LUVOX CR [Suspect]
     Active Substance: FLUVOXAMINE MALEATE
     Indication: OBSESSIVE-COMPULSIVE DISORDER
     Dosage: 50 MG, QD
     Dates: start: 20140530, end: 201406
  9. LUVOX CR [Suspect]
     Active Substance: FLUVOXAMINE MALEATE
     Dosage: 200 MG, UNK
     Dates: start: 201406, end: 201406
  10. LUVOX CR [Suspect]
     Active Substance: FLUVOXAMINE MALEATE
     Dosage: 50 MG, UNK
     Dates: start: 20140818, end: 20140819

REACTIONS (2)
  - Oscillopsia [Recovered/Resolved]
  - Tremor [Recovered/Resolved]
